FAERS Safety Report 13288445 (Version 8)
Quarter: 2018Q3

REPORT INFORMATION
  Report Type: Report from Study
  Country: US (occurrence: US)
  Receive Date: 20170302
  Receipt Date: 20180724
  Transmission Date: 20181010
  Serious: Yes (Hospitalization)
  Sender: FDA-Public Use
  Company Number: US-ACTELION-A-US2017-149872

PATIENT
  Age: 51 Year
  Sex: Male
  Weight: 63.49 kg

DRUGS (2)
  1. VELETRI [Suspect]
     Active Substance: EPOPROSTENOL
     Dosage: 14 NG/KG, PER MIN
     Route: 042
  2. VELETRI [Suspect]
     Active Substance: EPOPROSTENOL
     Indication: PULMONARY ARTERIAL HYPERTENSION
     Dosage: 15 NG/KG, PER MIN
     Route: 042

REACTIONS (6)
  - Catheter management [Unknown]
  - Device dislocation [Unknown]
  - Pneumonia [Unknown]
  - Swelling [Unknown]
  - Device related infection [Unknown]
  - Dyspnoea [Unknown]
